FAERS Safety Report 17361063 (Version 1)
Quarter: 2020Q1

REPORT INFORMATION
  Report Type: Spontaneous
  Country: US (occurrence: US)
  Receive Date: 20200131
  Receipt Date: 20200131
  Transmission Date: 20200409
  Serious: Yes (Death, Disabling)
  Sender: FDA-Public Use
  Company Number: None

PATIENT
  Sex: Male

DRUGS (22)
  1. DOCUSATE SOD [Concomitant]
  2. FUROSEMIDE. [Concomitant]
     Active Substance: FUROSEMIDE
  3. VITAMIN D3 [Concomitant]
     Active Substance: CHOLECALCIFEROL
  4. LEVOTHYROXIN [Concomitant]
     Active Substance: LEVOTHYROXINE
  5. CALCIUM [Concomitant]
     Active Substance: CALCIUM
  6. CELECOXIB. [Concomitant]
     Active Substance: CELECOXIB
  7. POT CHLORIDE TAB [Concomitant]
  8. SPIRIVA CAP HANDIHLR [Concomitant]
  9. ELIGARD [Concomitant]
     Active Substance: LEUPROLIDE ACETATE
  10. PROBIOTIC CAP [Concomitant]
  11. TRAMADOL. [Concomitant]
     Active Substance: TRAMADOL
  12. WIXELA INHUB [Concomitant]
     Active Substance: FLUTICASONE PROPIONATE\SALMETEROL XINAFOATE
  13. DALIRESP [Concomitant]
     Active Substance: ROFLUMILAST
  14. METOPROL SUCC [Concomitant]
  15. SPIRONOLACTONE. [Concomitant]
     Active Substance: SPIRONOLACTONE
  16. ABIRATERONE ACETATE. [Suspect]
     Active Substance: ABIRATERONE ACETATE
     Indication: PROSTATE CANCER
     Route: 048
     Dates: start: 20190115, end: 20200112
  17. HEPARIN [Concomitant]
     Active Substance: HEPARIN SODIUM
  18. PREDNISONE. [Concomitant]
     Active Substance: PREDNISONE
  19. SUDAFED PE CONGESTION [Concomitant]
     Active Substance: PHENYLEPHRINE HYDROCHLORIDE
  20. TAMSULOSIN [Concomitant]
     Active Substance: TAMSULOSIN
  21. XARELTO [Concomitant]
     Active Substance: RIVAROXABAN
  22. XGEVA [Concomitant]
     Active Substance: DENOSUMAB

REACTIONS (1)
  - Death [None]
